FAERS Safety Report 8198353-4 (Version None)
Quarter: 2012Q1

REPORT INFORMATION
  Report Type: 
  Country: None (occurrence: None)
  Receive Date: 20120309
  Receipt Date: 20111229
  Transmission Date: 20120608
  Serious: No
  Sender: FDA-Public Use
  Company Number: US-AMGEN-USASP2011069292

PATIENT
  Age: 85 Year
  Sex: Female

DRUGS (8)
  1. BYSTOLIC [Concomitant]
     Dosage: UNK
  2. PROLIA [Suspect]
     Indication: OSTEOPOROSIS POSTMENOPAUSAL
     Dosage: UNK
     Dates: start: 20110101
  3. TRIBENZOR [Concomitant]
     Dosage: UNK
  4. CLONIDINE [Concomitant]
     Dosage: UNK
     Route: 061
     Dates: start: 20110101
  5. SIMVASTATIN [Concomitant]
     Dosage: UNK
  6. TEKTURNA [Concomitant]
  7. VITAMIN TAB [Concomitant]
     Dosage: UNK
  8. CALCIUM [Concomitant]
     Dosage: UNK

REACTIONS (1)
  - DYSGEUSIA [None]
